FAERS Safety Report 16038156 (Version 5)
Quarter: 2022Q3

REPORT INFORMATION
  Report Type: Spontaneous
  Country: US (occurrence: None)
  Receive Date: 20190305
  Receipt Date: 20220823
  Transmission Date: 20221027
  Serious: Yes (Other)
  Sender: FDA-Public Use
  Company Number: 2019SE32335

PATIENT
  Age: 732 Month
  Sex: Female
  Weight: 83.9 kg

DRUGS (27)
  1. NEXIUM [Suspect]
     Active Substance: ESOMEPRAZOLE MAGNESIUM
     Indication: Ulcer
     Route: 048
     Dates: start: 20060826, end: 20060925
  2. NEXIUM [Suspect]
     Active Substance: ESOMEPRAZOLE MAGNESIUM
     Indication: Gastrooesophageal reflux disease
     Route: 048
     Dates: start: 20060826, end: 20060925
  3. PREVACID [Suspect]
     Active Substance: LANSOPRAZOLE
     Indication: Ulcer
     Route: 065
     Dates: start: 20041020, end: 20070114
  4. PREVACID [Suspect]
     Active Substance: LANSOPRAZOLE
     Indication: Gastrooesophageal reflux disease
     Route: 065
     Dates: start: 20041020, end: 20070114
  5. PREVACID 24 HR [Suspect]
     Active Substance: LANSOPRAZOLE
     Indication: Ulcer
     Route: 065
     Dates: start: 2009, end: 2017
  6. PREVACID 24 HR [Suspect]
     Active Substance: LANSOPRAZOLE
     Indication: Gastrooesophageal reflux disease
     Route: 065
     Dates: start: 2009, end: 2017
  7. PREVACID 24 HR [Suspect]
     Active Substance: LANSOPRAZOLE
     Indication: Ulcer
     Route: 065
     Dates: start: 20090531, end: 20170929
  8. PREVACID 24 HR [Suspect]
     Active Substance: LANSOPRAZOLE
     Indication: Gastrooesophageal reflux disease
     Route: 065
     Dates: start: 20090531, end: 20170929
  9. PROTONIX [Suspect]
     Active Substance: PANTOPRAZOLE SODIUM
     Indication: Ulcer
     Route: 065
     Dates: start: 20060831, end: 20061018
  10. PROTONIX [Suspect]
     Active Substance: PANTOPRAZOLE SODIUM
     Indication: Gastrooesophageal reflux disease
     Route: 065
     Dates: start: 20060831, end: 20061018
  11. CIPROFLOXACIN [Concomitant]
     Active Substance: CIPROFLOXACIN
  12. TRIMETHOPRIM [Concomitant]
     Active Substance: TRIMETHOPRIM
  13. LISINOPRIL [Concomitant]
     Active Substance: LISINOPRIL
  14. CEPHALEXIN [Concomitant]
     Active Substance: CEPHALEXIN
  15. LIPITOR [Concomitant]
     Active Substance: ATORVASTATIN CALCIUM
  16. HYDROCHLOROTHIAZIDE [Concomitant]
     Active Substance: HYDROCHLOROTHIAZIDE
  17. ACETAMINOPHEN [Concomitant]
     Active Substance: ACETAMINOPHEN
  18. IBUPROFEN [Concomitant]
     Active Substance: IBUPROFEN
  19. ZANTAC [Concomitant]
     Active Substance: RANITIDINE HYDROCHLORIDE
  20. VALSARTAN [Concomitant]
     Active Substance: VALSARTAN
  21. LEVOTHYROXINE [Concomitant]
     Active Substance: LEVOTHYROXINE
  22. SYNTHROID [Concomitant]
     Active Substance: LEVOTHYROXINE SODIUM
  23. NITROFURANTOIN [Concomitant]
     Active Substance: NITROFURANTOIN
  24. DOXYCYCLINE [Concomitant]
     Active Substance: DOXYCYCLINE
  25. METFORMIN [Concomitant]
     Active Substance: METFORMIN HYDROCHLORIDE
  26. MORPHINE [Concomitant]
     Active Substance: MORPHINE
  27. HYDROCHLOROTHIAZIDE\TRIAMTERENE [Concomitant]
     Active Substance: HYDROCHLOROTHIAZIDE\TRIAMTERENE

REACTIONS (3)
  - Chronic kidney disease [Not Recovered/Not Resolved]
  - Acute kidney injury [Unknown]
  - Renal injury [Unknown]

NARRATIVE: CASE EVENT DATE: 20170101
